FAERS Safety Report 9893021 (Version 1)
Quarter: 2014Q1

REPORT INFORMATION
  Report Type: Spontaneous
  Country: US (occurrence: US)
  Receive Date: 20140213
  Receipt Date: 20140213
  Transmission Date: 20141002
  Serious: No
  Sender: FDA-Public Use
  Company Number: US-BIOGENIDEC-2014BI014218

PATIENT
  Sex: Female

DRUGS (3)
  1. AVONEX [Suspect]
     Indication: MULTIPLE SCLEROSIS
     Route: 030
     Dates: start: 20100421
  2. AVONEX [Suspect]
     Indication: MULTIPLE SCLEROSIS
     Route: 030
  3. AVONEX [Suspect]
     Indication: MULTIPLE SCLEROSIS
     Route: 030

REACTIONS (7)
  - Injection site haemorrhage [Recovered/Resolved]
  - Loss of control of legs [Recovered/Resolved]
  - Hypoaesthesia [Not Recovered/Not Resolved]
  - Osteoarthritis [Unknown]
  - Underdose [Unknown]
  - Pain in extremity [Recovered/Resolved]
  - Arthralgia [Recovered/Resolved]
